FAERS Safety Report 16972264 (Version 1)
Quarter: 2019Q4

REPORT INFORMATION
  Report Type: Spontaneous
  Country: US (occurrence: US)
  Receive Date: 20191029
  Receipt Date: 20191029
  Transmission Date: 20200122
  Serious: No
  Sender: FDA-Public Use
  Company Number: US-TEVA-2019-US-1130482

PATIENT
  Sex: Female

DRUGS (1)
  1. ATENOLOL TEVA [Suspect]
     Active Substance: ATENOLOL
     Dosage: 50 MG
     Route: 065
     Dates: start: 2018

REACTIONS (3)
  - Fatigue [Recovered/Resolved]
  - Sluggishness [Recovered/Resolved]
  - Pain [Recovered/Resolved]
